FAERS Safety Report 6051176-4 (Version None)
Quarter: 2009Q1

REPORT INFORMATION
  Report Type: 
  Country: None (occurrence: None)
  Receive Date: 20090126
  Receipt Date: 20090120
  Transmission Date: 20090719
  Serious: Yes (Hospitalization)
  Sender: FDA-Public Use
  Company Number: US-AVENTIS-200818252US

PATIENT
  Age: 76 Year
  Sex: Male

DRUGS (10)
  1. LOVENOX [Suspect]
     Indication: PROPHYLAXIS
     Dates: start: 20081122, end: 20081122
  2. COUMADIN [Concomitant]
  3. COUMADIN [Concomitant]
  4. ASPIRIN [Concomitant]
     Dosage: DOSE: UNK
  5. ALDACTONE [Concomitant]
  6. BUMEX [Concomitant]
     Indication: SWELLING
     Dosage: DOSE: 2 MG TID PRN
  7. COREG [Concomitant]
  8. ZOCOR [Concomitant]
  9. ALBUTEROL [Concomitant]
     Indication: RESPIRATORY DISORDER
     Dosage: DOSE: UNK
  10. ADVAIR DISKUS 100/50 [Concomitant]
     Dosage: DOSE: UNK

REACTIONS (2)
  - RECTAL HAEMORRHAGE [None]
  - THROMBOSIS [None]
